FAERS Safety Report 9554772 (Version 4)
Quarter: 2014Q1

REPORT INFORMATION
  Report Type: Spontaneous
  Country: US (occurrence: US)
  Receive Date: 20130926
  Receipt Date: 20140320
  Transmission Date: 20141002
  Serious: Yes (Hospitalization)
  Sender: FDA-Public Use
  Company Number: US-BIOGENIDEC-2013BI090576

PATIENT
  Age: 38 Year
  Sex: Female

DRUGS (1)
  1. TYSABRI [Suspect]
     Indication: CROHN^S DISEASE
     Route: 042
     Dates: start: 20121001, end: 20130611

REACTIONS (6)
  - Large intestinal stenosis [Recovered/Resolved]
  - Intestinal dilatation [Recovered/Resolved]
  - Colonic fistula [Recovered/Resolved]
  - Gastrointestinal disorder [Unknown]
  - Post procedural swelling [Unknown]
  - Pain [Recovered/Resolved]
